FAERS Safety Report 25759866 (Version 1)
Quarter: 2025Q3

REPORT INFORMATION
  Report Type: Report from Study
  Country: BR (occurrence: BR)
  Receive Date: 20250904
  Receipt Date: 20250904
  Transmission Date: 20251020
  Serious: Yes (Other)
  Sender: JOHNSON AND JOHNSON
  Company Number: BR-JNJFOC-20241113965

PATIENT
  Age: 61 Year
  Sex: Female
  Weight: 81 kg

DRUGS (5)
  1. GOLIMUMAB [Suspect]
     Active Substance: GOLIMUMAB
     Indication: Rheumatoid arthritis
     Route: 058
  2. GOLIMUMAB [Suspect]
     Active Substance: GOLIMUMAB
     Route: 058
     Dates: end: 20241215
  3. GOLIMUMAB [Suspect]
     Active Substance: GOLIMUMAB
  4. SIMPONI [Suspect]
     Active Substance: GOLIMUMAB
     Indication: Rheumatoid arthritis
     Route: 058
  5. SIMPONI [Suspect]
     Active Substance: GOLIMUMAB

REACTIONS (8)
  - Syncope [Unknown]
  - Rheumatoid arthritis [Unknown]
  - Chronic gastritis [Unknown]
  - Lactose intolerance [Recovered/Resolved]
  - Rash macular [Recovered/Resolved]
  - Paraesthesia [Unknown]
  - Nausea [Unknown]
  - Depression [Unknown]

NARRATIVE: CASE EVENT DATE: 20241001
